FAERS Safety Report 9170607 (Version 1)
Quarter: 2013Q1

REPORT INFORMATION
  Report Type: Spontaneous
  Country: GB (occurrence: None)
  Receive Date: 20130311
  Receipt Date: 20130311
  Transmission Date: 20140127
  Serious: Yes (Life-Threatening, Hospitalization, Disabling)
  Sender: FDA-Public Use
  Company Number: AUR-APL-2013-01973

PATIENT
  Age: 57 Year
  Sex: Female
  Weight: 76.2 kg

DRUGS (6)
  1. FLUCONAZOLE (FLUCONAZOLE) [Suspect]
     Indication: PRODUCT USED FOR UNKNOWN INDICATION
     Dates: start: 20130117
  2. ALGINATES [Concomitant]
  3. ALMODIPINE (AMLODIPINE) [Concomitant]
  4. ATENOLOL (ATENOLOL) [Concomitant]
  5. CO-AMOXICLAV (AMOXICILLIN W/CAVULANATE POTASSIUM) [Concomitant]
  6. CO-DYDRAMOL (PARAMOL-118) [Concomitant]

REACTIONS (2)
  - Encephalitis [None]
  - Meningitis [None]
